FAERS Safety Report 11613506 (Version 1)
Quarter: 2015Q4

REPORT INFORMATION
  Report Type: Spontaneous
  Country: PL (occurrence: PL)
  Receive Date: 20151008
  Receipt Date: 20151008
  Transmission Date: 20160304
  Serious: Yes (Other)
  Sender: FDA-Public Use
  Company Number: PL-BAYER-2015-432077

PATIENT
  Age: 57 Year
  Sex: Female
  Weight: 75 kg

DRUGS (1)
  1. ULTRAVIST [Suspect]
     Active Substance: IOPROMIDE
     Dosage: 75 ML, ONCE
     Route: 042
     Dates: start: 20150330, end: 20150330

REACTIONS (2)
  - Erythema [Recovered/Resolved]
  - Vein collapse [Recovered/Resolved]

NARRATIVE: CASE EVENT DATE: 20150330
